FAERS Safety Report 5526711-2 (Version None)
Quarter: 2007Q4

REPORT INFORMATION
  Report Type: 
  Country: None (occurrence: None)
  Receive Date: 20071127
  Receipt Date: 20071116
  Transmission Date: 20080405
  Serious: Yes (Other)
  Sender: FDA-Public Use
  Company Number: NO-JNJFOC-20071106905

PATIENT
  Sex: Male

DRUGS (6)
  1. REMICADE [Suspect]
     Indication: PSORIATIC ARTHROPATHY
     Route: 042
  2. COAPROVEL [Concomitant]
     Indication: HYPERTENSION
     Route: 048
  3. FOLINSYRE [Concomitant]
     Indication: PSORIATIC ARTHROPATHY
     Route: 048
  4. DICLOFENAC SODIUM [Concomitant]
     Indication: ATRIAL FIBRILLATION
     Route: 048
  5. TAMBOCOR [Concomitant]
     Indication: ATRIAL FIBRILLATION
     Route: 048
  6. METHOTREXATE [Concomitant]
     Indication: PSORIATIC ARTHROPATHY
     Route: 048

REACTIONS (1)
  - PROSTATE CANCER STAGE III [None]
